FAERS Safety Report 13767958 (Version 4)
Quarter: 2020Q1

REPORT INFORMATION
  Report Type: Spontaneous
  Country: US (occurrence: US)
  Receive Date: 20170719
  Receipt Date: 20200203
  Transmission Date: 20200409
  Serious: No
  Sender: FDA-Public Use
  Company Number: US-PFIZER INC-2017308254

PATIENT
  Age: 64 Year
  Sex: Female

DRUGS (1)
  1. HALCION [Suspect]
     Active Substance: TRIAZOLAM
     Dosage: UNK

REACTIONS (4)
  - Drug intolerance [Unknown]
  - Drug hypersensitivity [Unknown]
  - Sedation complication [Unknown]
  - Somnolence [Unknown]
